FAERS Safety Report 8514816-3 (Version None)
Quarter: 2012Q3

REPORT INFORMATION
  Report Type: 
  Country: None (occurrence: None)
  Receive Date: 20120711
  Receipt Date: 20120711
  Transmission Date: 20120928
  Serious: Yes (Death)
  Sender: FDA-Public Use
  Company Number: None

PATIENT
  Sex: Female
  Weight: 69.4003 kg

DRUGS (2)
  1. GABAPENTIN [Suspect]
     Indication: HERPES ZOSTER
  2. HYDROCODONE BITARTRATE [Suspect]
     Indication: HERPES ZOSTER

REACTIONS (2)
  - COMPLETED SUICIDE [None]
  - ASPHYXIA [None]
